FAERS Safety Report 5397730-4 (Version None)
Quarter: 2007Q3

REPORT INFORMATION
  Report Type: 
  Country: None (occurrence: None)
  Receive Date: 20070723
  Receipt Date: 20070723
  Transmission Date: 20080115
  Serious: No
  Sender: FDA-Public Use
  Company Number: None

PATIENT
  Sex: Female
  Weight: 72.5755 kg

DRUGS (2)
  1. ZICAM [Suspect]
     Indication: NASOPHARYNGITIS
     Dosage: AS PER DIRECTIONS  TWICE ?  NASAL
     Route: 045
  2. COLD EZE [Suspect]
     Indication: NASOPHARYNGITIS
     Dosage: AS PER DIRECTIONS   ONCE ?  NASAL
     Route: 045

REACTIONS (2)
  - FEELING ABNORMAL [None]
  - PAROSMIA [None]
